FAERS Safety Report 11500088 (Version 1)
Quarter: 2015Q3

REPORT INFORMATION
  Report Type: Spontaneous
  Country: US (occurrence: US)
  Receive Date: 20150914
  Receipt Date: 20150914
  Transmission Date: 20151125
  Serious: Yes (Other)
  Sender: FDA-Public Use
  Company Number: US-HQ SPECIALTY-US-2015INT000534

PATIENT

DRUGS (11)
  1. HERCEPTIN [Suspect]
     Active Substance: TRASTUZUMAB
     Indication: BREAST CANCER
     Dosage: 130 MG (AT 2 MG/KG) ONCE SHORT OVER 30 MINS IN NS 250 ML
     Route: 042
     Dates: start: 20140522, end: 20150514
  2. SODIUM CHLORIDE. [Concomitant]
     Active Substance: SODIUM CHLORIDE
     Dosage: 250 ML OF 0.9 %
     Route: 042
     Dates: start: 20140522, end: 20150514
  3. DIPHENHYDRAMINE HCL [Concomitant]
     Active Substance: DIPHENHYDRAMINE HYDROCHLORIDE
     Dosage: 25 MG, ONCE SHORT OVER 10 MIN IN NS 50 ML
     Route: 042
     Dates: start: 20140522, end: 20140717
  4. ACETAMINOPHEN. [Concomitant]
     Active Substance: ACETAMINOPHEN
     Dosage: UNK, 650 MG (OF 325MG)
     Route: 048
     Dates: start: 20140522, end: 20140904
  5. FAMOTIDINE. [Concomitant]
     Active Substance: FAMOTIDINE
     Dosage: DAILY SHORT OVER 10 MINS FOR 1 DAYIN NS 50 ML (2)
     Route: 042
     Dates: start: 20140522, end: 20140731
  6. DEXAMETHASONE SODIUM PHOSPHATE. [Concomitant]
     Active Substance: DEXAMETHASONE SODIUM PHOSPHATE
     Dosage: 10 MG, ONCE SHORT OVER 20 MINUTES IN NS 50 ML
     Route: 042
     Dates: start: 20140522, end: 20140717
  7. PANTOPRAZOLE [Concomitant]
     Active Substance: PANTOPRAZOLE SODIUM
     Dosage: 40 MG, QD
     Route: 048
     Dates: start: 20140508, end: 20150905
  8. GABAPENTIN. [Concomitant]
     Active Substance: GABAPENTIN
     Dosage: 200 MG (OF 100 MG), TID
     Route: 048
     Dates: start: 20140707, end: 20140926
  9. TAXOL [Suspect]
     Active Substance: PACLITAXEL
     Indication: BREAST CANCER
     Dosage: 100MG (AT 64 MG/M2) ONCE SHORT OVER 60 MINUTES IN NS 250 ML, 9 WEEKS
     Route: 042
     Dates: start: 20140522, end: 20140717
  10. PROCHLORPERAZINE MALEATE. [Concomitant]
     Active Substance: PROCHLORPERAZINE MALEATE
     Dosage: UNK
     Dates: start: 20140508
  11. ALOXI [Concomitant]
     Active Substance: PALONOSETRON HYDROCHLORIDE
     Dosage: 0.25 ?G, SOLUTION, DAILY PUSH OVER 30 SECONDS FOR ONE DAY
     Dates: start: 20140522, end: 20140717

REACTIONS (11)
  - Areflexia [Unknown]
  - Neuropathy peripheral [Not Recovered/Not Resolved]
  - Myalgia [Unknown]
  - Gait disturbance [Unknown]
  - Hypoaesthesia [Not Recovered/Not Resolved]
  - Pain [Not Recovered/Not Resolved]
  - Disease progression [Unknown]
  - Poor quality sleep [Not Recovered/Not Resolved]
  - Arthralgia [Unknown]
  - Bone pain [Unknown]
  - Paraesthesia [Not Recovered/Not Resolved]

NARRATIVE: CASE EVENT DATE: 2014
